FAERS Safety Report 5486634-4 (Version None)
Quarter: 2007Q4

REPORT INFORMATION
  Report Type: 
  Country: None (occurrence: None)
  Receive Date: 20071016
  Receipt Date: 20071008
  Transmission Date: 20080405
  Serious: Yes (Death, Hospitalization)
  Sender: FDA-Public Use
  Company Number: US-AVENTIS-200718984GDDC

PATIENT
  Age: 54 Year
  Sex: Male
  Weight: 58.06 kg

DRUGS (8)
  1. TAXOTERE [Suspect]
     Route: 042
     Dates: start: 20070920, end: 20070920
  2. XELODA [Suspect]
     Dosage: DOSE: 500 DAYS 5-18
     Route: 048
     Dates: start: 20070820, end: 20070925
  3. DECADRON [Concomitant]
     Dates: start: 20070830
  4. CELEXA [Concomitant]
     Dates: start: 20070828
  5. FENTANYL TRANSDERMAL SYSTEM [Concomitant]
     Dates: start: 20070129
  6. HALDOL [Concomitant]
     Dates: start: 20070131
  7. ZANTAC [Concomitant]
     Dates: start: 20070913
  8. ZOFRAN [Concomitant]
     Dates: start: 20070904

REACTIONS (1)
  - GASTROINTESTINAL HAEMORRHAGE [None]
